FAERS Safety Report 4293163-2 (Version None)
Quarter: 2004Q1

REPORT INFORMATION
  Report Type: 
  Country: None (occurrence: None)
  Receive Date: 20040105
  Receipt Date: 20031208
  Transmission Date: 20041129
  Serious: Yes (Hospitalization)
  Sender: FDA-Public Use
  Company Number: 200311398BVD

PATIENT
  Age: 62 Year
  Sex: Male
  Weight: 54 kg

DRUGS (13)
  1. GAMIMUNE N 10% [Suspect]
     Indication: IMMUNODEFICIENCY COMMON VARIABLE
     Dosage: INTRAVENOUS
     Route: 042
     Dates: start: 20030715
  2. GAMIMUNE N 10% [Suspect]
     Indication: IMMUNODEFICIENCY COMMON VARIABLE
     Dosage: INTRAVENOUS
     Route: 042
     Dates: start: 20030812
  3. GAMIMUNE N 10% [Suspect]
     Indication: IMMUNODEFICIENCY COMMON VARIABLE
     Dosage: INTRAVENOUS
     Route: 042
     Dates: start: 20030925
  4. GAMIMUNE N 10% [Suspect]
     Indication: IMMUNODEFICIENCY COMMON VARIABLE
     Dosage: INTRAVENOUS
     Route: 042
     Dates: start: 20031009
  5. GAMIMUNE N 10% [Suspect]
     Indication: IMMUNODEFICIENCY COMMON VARIABLE
     Dosage: INTRAVENOUS
     Route: 042
     Dates: start: 20031027
  6. GAMIMUNE N 10% [Suspect]
     Indication: IMMUNODEFICIENCY COMMON VARIABLE
     Dosage: INTRAVENOUS
     Route: 042
     Dates: start: 20031117
  7. FORADIL [Concomitant]
  8. SPIRIVA [Concomitant]
  9. DELIX [Concomitant]
  10. UNAT [Concomitant]
  11. ROCALTROL [Concomitant]
  12. PANTOZOL [Concomitant]
  13. CIPROBAY [Concomitant]

REACTIONS (1)
  - CHRONIC OBSTRUCTIVE AIRWAYS DISEASE EXACERBATED [None]
